FAERS Safety Report 20585174 (Version 7)
Quarter: 2022Q3

REPORT INFORMATION
  Report Type: Spontaneous
  Country: CA (occurrence: CA)
  Receive Date: 20220311
  Receipt Date: 20220723
  Transmission Date: 20221027
  Serious: Yes (Other)
  Sender: FDA-Public Use
  Company Number: CA-CELLTRION INC.-2021CA010859

PATIENT

DRUGS (21)
  1. INFLECTRA [Suspect]
     Active Substance: INFLIXIMAB-DYYB
     Indication: Rheumatoid arthritis
     Dosage: 5 MG/KG, 0, 2, 6 WEEKS, THEN EVERY 8 WEEKS
     Route: 042
     Dates: start: 20171222, end: 20190405
  2. INFLECTRA [Suspect]
     Active Substance: INFLIXIMAB-DYYB
     Dosage: 510 MG,EVERY 8 WEEKS
     Route: 042
     Dates: start: 20190531, end: 20200819
  3. INFLECTRA [Suspect]
     Active Substance: INFLIXIMAB-DYYB
     Dosage: 510 MG,EVERY 6 WEEKS
     Route: 042
     Dates: start: 20201005, end: 20210505
  4. INFLECTRA [Suspect]
     Active Substance: INFLIXIMAB-DYYB
     Dosage: 510 MG,EVERY 6 WEEKS
     Route: 042
     Dates: start: 20201005
  5. INFLECTRA [Suspect]
     Active Substance: INFLIXIMAB-DYYB
     Dosage: 5 MG/KG,EVERY 6 WEEKS
     Route: 042
     Dates: start: 20210617
  6. INFLECTRA [Suspect]
     Active Substance: INFLIXIMAB-DYYB
     Dosage: 5 MG/KG EVERY 6 WEEKS
     Route: 042
     Dates: start: 20210728
  7. INFLECTRA [Suspect]
     Active Substance: INFLIXIMAB-DYYB
     Dosage: 510 MG EVERY 6 WEEKS
     Route: 042
     Dates: start: 20210910
  8. INFLECTRA [Suspect]
     Active Substance: INFLIXIMAB-DYYB
     Dosage: 510 MG EVERY 6 WEEKS
     Route: 042
     Dates: start: 20211019
  9. INFLECTRA [Suspect]
     Active Substance: INFLIXIMAB-DYYB
     Dosage: 510 MG EVERY 6 WEEKS
     Route: 042
     Dates: start: 20211129
  10. INFLECTRA [Suspect]
     Active Substance: INFLIXIMAB-DYYB
     Dosage: 510 MG EVERY 6 WEEKS
     Route: 042
     Dates: start: 20220111
  11. INFLECTRA [Suspect]
     Active Substance: INFLIXIMAB-DYYB
     Dosage: 505 MG
     Route: 042
     Dates: start: 20220301
  12. INFLECTRA [Suspect]
     Active Substance: INFLIXIMAB-DYYB
     Dosage: 510 MG EVERY 6 WEEKS
     Route: 042
     Dates: start: 20220525
  13. INFLECTRA [Suspect]
     Active Substance: INFLIXIMAB-DYYB
     Dosage: 510 MG EVERY 6 WEEKS
     Route: 042
     Dates: start: 20220712
  14. CELEBREX [Concomitant]
     Active Substance: CELECOXIB
     Indication: Pain
     Dosage: 1 DF
     Route: 065
  15. METHOBAX [METHOTREXATE SODIUM] [Concomitant]
     Dosage: 20 MG
     Route: 065
     Dates: start: 2013
  16. NAPROXEN [Concomitant]
     Active Substance: NAPROXEN
     Indication: Pain
     Dosage: 1 DF DOSAGE INFORMATION NOT AVAILABLE
     Route: 065
  17. PREDNISONE [Concomitant]
     Active Substance: PREDNISONE
     Dosage: 1 DF DOSAGE INFORMATION NOT AVAILABLE
     Route: 065
  18. TOPAMAX [Concomitant]
     Active Substance: TOPIRAMATE
     Dosage: 1 DF DOSAGE INFORMATION NOT AVAILABLE
     Route: 065
  19. TYLENOL [Concomitant]
     Active Substance: ACETAMINOPHEN
     Indication: Pain
     Dosage: 1 DF DOSAGE INFORMATION NOT AVAILABLE
     Route: 065
  20. VITAMIN D3 [Concomitant]
     Active Substance: CHOLECALCIFEROL
     Dosage: 1 DF DOSAGE INFORMATION NOT AVAILABLE
     Route: 065
  21. VITAMIN D NOS [Concomitant]
     Active Substance: VITAMIN D NOS
     Dosage: 1 DF, DOSAGE INFORMATION NOT AVAILABLE
     Route: 065

REACTIONS (20)
  - Rheumatoid arthritis [Unknown]
  - Gait disturbance [Unknown]
  - Loss of personal independence in daily activities [Unknown]
  - Gastroenteritis viral [Unknown]
  - Vomiting [Unknown]
  - Nausea [Unknown]
  - Pyrexia [Unknown]
  - Gastroenteritis [Unknown]
  - Dysstasia [Unknown]
  - Skin lesion [Not Recovered/Not Resolved]
  - Papule [Not Recovered/Not Resolved]
  - Burning sensation [Not Recovered/Not Resolved]
  - Thermal burn [Not Recovered/Not Resolved]
  - Pain [Not Recovered/Not Resolved]
  - Rash [Unknown]
  - Malaise [Not Recovered/Not Resolved]
  - Hand-foot-and-mouth disease [Not Recovered/Not Resolved]
  - Off label use [Unknown]
  - Incorrect dose administered [Unknown]
  - Product dose omission issue [Unknown]

NARRATIVE: CASE EVENT DATE: 20201005
